FAERS Safety Report 5911181-2 (Version None)
Quarter: 2008Q4

REPORT INFORMATION
  Report Type: 
  Country: None (occurrence: None)
  Receive Date: 20081007
  Receipt Date: 20080523
  Transmission Date: 20090506
  Serious: No
  Sender: FDA-Public Use
  Company Number: US-BRISTOL-MYERS SQUIBB COMPANY-14207211

PATIENT
  Sex: Female

DRUGS (3)
  1. AVAPRO [Suspect]
  2. LEVOTHYROXINE SODIUM [Suspect]
  3. NORVASC [Suspect]

REACTIONS (1)
  - MUSCLE SPASMS [None]
